FAERS Safety Report 4559217-8 (Version None)
Quarter: 2005Q1

REPORT INFORMATION
  Report Type: 
  Country: None (occurrence: None)
  Receive Date: 20050124
  Receipt Date: 20050113
  Transmission Date: 20050727
  Serious: Yes (Other)
  Sender: FDA-Public Use
  Company Number: US-MERCK-0501USA02755

PATIENT

DRUGS (1)
  1. ASPARAGINASE (AS DRUG) [Suspect]
     Route: 065

REACTIONS (3)
  - HAEMORRHAGIC INFARCTION [None]
  - NERVOUS SYSTEM DISORDER [None]
  - THROMBOSIS [None]
